FAERS Safety Report 6720968-8 (Version None)
Quarter: 2010Q2

REPORT INFORMATION
  Report Type: 
  Country: None (occurrence: None)
  Receive Date: 20100510
  Receipt Date: 20100430
  Transmission Date: 20101027
  Serious: Yes (Life-Threatening)
  Sender: FDA-Public Use
  Company Number: 1000013628

PATIENT
  Age: 73 Year
  Sex: Female

DRUGS (12)
  1. NEBIVOLOL HCL [Suspect]
     Indication: MYOCARDIAL ISCHAEMIA
     Dosage: 5 MG (5 MG, 1 IN 1 D), ORAL
     Route: 048
     Dates: start: 20091015, end: 20091017
  2. NULYTELY [Concomitant]
  3. LASIX [Concomitant]
  4. ASPIRIN [Concomitant]
  5. GLUCOPHAGE [Concomitant]
  6. TAREG [Concomitant]
  7. TORVAST [Concomitant]
  8. ZANEDIP [Concomitant]
  9. CORDARONE [Concomitant]
  10. FRONTAL [Concomitant]
  11. CIPRALEX [Concomitant]
  12. DIBASE [Concomitant]

REACTIONS (6)
  - DYSPNOEA [None]
  - LIP OEDEMA [None]
  - OFF LABEL USE [None]
  - PRURITUS [None]
  - TONGUE OEDEMA [None]
  - URTICARIA [None]
